FAERS Safety Report 9861697 (Version 1)
Quarter: 2014Q1

REPORT INFORMATION
  Report Type: Spontaneous
  Country: US (occurrence: None)
  Receive Date: 20140130
  Receipt Date: 20140130
  Transmission Date: 20141002
  Serious: No
  Sender: FDA-Public Use
  Company Number: 14AE006

PATIENT
  Age: 71 Year
  Sex: Female
  Weight: 73.48 kg

DRUGS (7)
  1. EQUATE DOXYLAMINE SUCCINATE TABLETS, 25 MG [Suspect]
     Indication: INSOMNIA
     Dosage: BY MOUTH/ PER NIGHT
     Route: 048
  2. FOSAMAX [Concomitant]
  3. OMEPRAZOLE [Concomitant]
  4. CITALOPRAM [Concomitant]
  5. LEVOTHYROXINE [Concomitant]
  6. TENORMIN [Concomitant]
  7. NAPROXEN [Concomitant]

REACTIONS (2)
  - Headache [None]
  - Dry mouth [None]
